FAERS Safety Report 4572300-6 (Version None)
Quarter: 2005Q1

REPORT INFORMATION
  Report Type: 
  Country: None (occurrence: None)
  Receive Date: 20050203
  Receipt Date: 20021125
  Transmission Date: 20050727
  Serious: Yes (Death)
  Sender: FDA-Public Use
  Company Number: 2002GB02750

PATIENT
  Age: 63 Year
  Sex: Female

DRUGS (9)
  1. PROPOFOL [Suspect]
     Indication: INDUCTION AND MAINTENANCE OF ANAESTHESIA
     Dates: start: 19991201, end: 19991201
  2. PROPOFOL [Suspect]
     Indication: INDUCTION AND MAINTENANCE OF ANAESTHESIA
     Dosage: 150 MG DAILY IV
     Route: 042
     Dates: start: 20000701
  3. FENTANYL [Suspect]
     Indication: INDUCTION AND MAINTENANCE OF ANAESTHESIA
     Dates: start: 19991201, end: 19991201
  4. FENTANYL [Suspect]
     Indication: INDUCTION AND MAINTENANCE OF ANAESTHESIA
     Dosage: 0.25 MG DAILY IV
     Route: 042
     Dates: start: 20000701
  5. PERINDOPRIL [Concomitant]
  6. SOTALOL HCL [Concomitant]
  7. THYROXINE [Concomitant]
  8. PANCURONIUM [Concomitant]
  9. MIDAZOLAM HCL [Concomitant]

REACTIONS (10)
  - ANAPHYLACTIC REACTION [None]
  - ATHEROSCLEROSIS [None]
  - CARDIAC ARREST [None]
  - CARDIOMEGALY [None]
  - CARDIOMYOPATHY [None]
  - CIRCULATORY COLLAPSE [None]
  - ELECTROMECHANICAL DISSOCIATION [None]
  - HEART RATE DECREASED [None]
  - OXYGEN SATURATION DECREASED [None]
  - VASODILATATION [None]
